FAERS Safety Report 14493421 (Version 1)
Quarter: 2018Q1

REPORT INFORMATION
  Report Type: Spontaneous
  Country: US (occurrence: US)
  Receive Date: 20180205
  Receipt Date: 20180205
  Transmission Date: 20180509
  Serious: Yes (Other)
  Sender: FDA-Public Use
  Company Number: None

PATIENT
  Age: 52 Year
  Sex: Male

DRUGS (1)
  1. TRIAMCINOLONE [Suspect]
     Active Substance: TRIAMCINOLONE
     Dosage: ?          OTHER FREQUENCY:X1 DOSE;?
     Route: 031
     Dates: start: 20180117, end: 20180117

REACTIONS (3)
  - Endophthalmitis [None]
  - Vitreous floaters [None]
  - Vision blurred [None]

NARRATIVE: CASE EVENT DATE: 20180117
